FAERS Safety Report 5776006-7 (Version None)
Quarter: 2008Q2

REPORT INFORMATION
  Report Type: 
  Country: None (occurrence: None)
  Receive Date: 20080613
  Receipt Date: 20080529
  Transmission Date: 20081010
  Serious: Yes (Death, Hospitalization)
  Sender: FDA-Public Use
  Company Number: 2008000959

PATIENT
  Sex: Male

DRUGS (2)
  1. ERLOTINIB (ERLOTINIB HCL) (TABLET) (ERLOTINIB HCL) [Suspect]
     Indication: PANCREATIC CARCINOMA
     Dosage: (150 MG, QD), ORAL
     Route: 048
     Dates: start: 20080410, end: 20080422
  2. EVEROLIMUS (EVEROLIMUS) [Suspect]
     Indication: PANCREATIC CARCINOMA
     Dosage: (30 MG, WEEKLY), ORAL
     Route: 048
     Dates: start: 20080410, end: 20080417

REACTIONS (7)
  - ANOREXIA [None]
  - ASCITES [None]
  - CHILLS [None]
  - HYPERGLYCAEMIA [None]
  - HYPONATRAEMIA [None]
  - MALIGNANT NEOPLASM PROGRESSION [None]
  - PYREXIA [None]
